FAERS Safety Report 6452924-1 (Version None)
Quarter: 2009Q4

REPORT INFORMATION
  Report Type: 
  Country: None (occurrence: None)
  Receive Date: 20091124
  Receipt Date: 20091113
  Transmission Date: 20100525
  Serious: Yes (Hospitalization, Other)
  Sender: FDA-Public Use
  Company Number: US-CELGENEUS-163-21880-09101993

PATIENT
  Sex: Female

DRUGS (5)
  1. REVLIMID [Suspect]
     Route: 048
     Dates: start: 20091006, end: 20090101
  2. REVLIMID [Suspect]
     Route: 048
     Dates: start: 20090101
  3. REVLIMID [Suspect]
     Route: 048
     Dates: start: 20090101
  4. MORPHINE [Concomitant]
     Indication: DRUG USE FOR UNKNOWN INDICATION
     Route: 065
  5. SYNTHROID [Concomitant]
     Indication: DRUG USE FOR UNKNOWN INDICATION
     Route: 065

REACTIONS (3)
  - BLOOD PRODUCT TRANSFUSION DEPENDENT [None]
  - PANCYTOPENIA [None]
  - RASH [None]
